FAERS Safety Report 12502351 (Version 2)
Quarter: 2016Q3

REPORT INFORMATION
  Report Type: Spontaneous
  Country: AU (occurrence: US)
  Receive Date: 20160627
  Receipt Date: 20160725
  Transmission Date: 20161109
  Serious: Yes (Death)
  Sender: FDA-Public Use
  Company Number: AU-009507513-1606USA009223

PATIENT
  Sex: Male

DRUGS (14)
  1. CARBOPLATIN. [Suspect]
     Active Substance: CARBOPLATIN
     Indication: NEUROECTODERMAL NEOPLASM
  2. BEVACIZUMAB [Suspect]
     Active Substance: BEVACIZUMAB
     Indication: NEUROECTODERMAL NEOPLASM
  3. VINCRISTINE SULFATE. [Suspect]
     Active Substance: VINCRISTINE SULFATE
     Indication: NEUROECTODERMAL NEOPLASM
  4. EVEROLIMUS [Suspect]
     Active Substance: EVEROLIMUS
     Indication: MALIGNANT OLIGODENDROGLIOMA
  5. VINBLASTINE SULFATE. [Suspect]
     Active Substance: VINBLASTINE SULFATE
     Indication: MALIGNANT OLIGODENDROGLIOMA
  6. VINBLASTINE SULFATE. [Suspect]
     Active Substance: VINBLASTINE SULFATE
     Indication: NEUROECTODERMAL NEOPLASM
  7. TEMODAR [Suspect]
     Active Substance: TEMOZOLOMIDE
     Indication: MALIGNANT OLIGODENDROGLIOMA
     Route: 048
  8. TEMODAR [Suspect]
     Active Substance: TEMOZOLOMIDE
     Indication: NEUROECTODERMAL NEOPLASM
  9. LOMUSTINE (+) PROCARBAZINE (+) THIOGUANINE (+) VINCRISTINE SULFATE [Suspect]
     Active Substance: LOMUSTINE\PROCARBAZINE\THIOGUANINE\VINCRISTINE SULFATE
     Indication: MALIGNANT OLIGODENDROGLIOMA
  10. BEVACIZUMAB [Suspect]
     Active Substance: BEVACIZUMAB
     Indication: MALIGNANT OLIGODENDROGLIOMA
  11. LOMUSTINE (+) PROCARBAZINE (+) THIOGUANINE (+) VINCRISTINE SULFATE [Suspect]
     Active Substance: LOMUSTINE\PROCARBAZINE\THIOGUANINE\VINCRISTINE SULFATE
     Indication: NEUROECTODERMAL NEOPLASM
  12. CARBOPLATIN. [Suspect]
     Active Substance: CARBOPLATIN
     Indication: MALIGNANT OLIGODENDROGLIOMA
  13. EVEROLIMUS [Suspect]
     Active Substance: EVEROLIMUS
     Indication: NEUROECTODERMAL NEOPLASM
  14. VINCRISTINE SULFATE. [Suspect]
     Active Substance: VINCRISTINE SULFATE
     Indication: MALIGNANT OLIGODENDROGLIOMA

REACTIONS (2)
  - Neuroectodermal neoplasm [Fatal]
  - Drug ineffective [Fatal]
